FAERS Safety Report 9787509 (Version 2)
Quarter: 2013Q4

REPORT INFORMATION
  Report Type: Report from Study
  Country: US (occurrence: US)
  Receive Date: 20131230
  Receipt Date: 20131230
  Transmission Date: 20140711
  Serious: Yes (Hospitalization, Other)
  Sender: FDA-Public Use
  Company Number: US-ROCHE-1219547

PATIENT
  Sex: 0

DRUGS (9)
  1. RITUXIMAB [Suspect]
     Indication: PRIMARY MEDIASTINAL LARGE B-CELL LYMPHOMA
     Route: 065
  2. ETOPOSIDE [Suspect]
     Indication: PRIMARY MEDIASTINAL LARGE B-CELL LYMPHOMA
     Route: 065
  3. DOXORUBICIN HYDROCHLORIDE [Suspect]
     Indication: PRIMARY MEDIASTINAL LARGE B-CELL LYMPHOMA
     Route: 065
  4. CYCLOPHOSPHAMIDE [Suspect]
     Indication: PRIMARY MEDIASTINAL LARGE B-CELL LYMPHOMA
     Route: 065
  5. VINCRISTINE [Suspect]
     Indication: PRIMARY MEDIASTINAL LARGE B-CELL LYMPHOMA
     Route: 065
  6. PREDNISONE [Suspect]
     Indication: PRIMARY MEDIASTINAL LARGE B-CELL LYMPHOMA
     Route: 065
  7. ALLOPURINOL [Concomitant]
     Route: 065
  8. METHOTREXAT [Concomitant]
     Dosage: TWICE WEEKLY FOR 4 WEEKS, THEN ONCE WEEKLY FOR 6 WEEKS, AND THEN ONCE MONTHLY FOR 4 MONTHS.
     Route: 065
  9. METHOTREXAT [Concomitant]
     Dosage: TWICE WEEKLY FOR 4 WEEKS, THEN ONCE WEEKLY FOR 6 WEEKS, AND THEN ONCE MONTHLY FOR 4 MONTHS.
     Route: 065

REACTIONS (6)
  - Neutropenia [Unknown]
  - Thrombocytopenia [Unknown]
  - Pyrexia [Unknown]
  - Mucosal inflammation [Unknown]
  - Ileus [Unknown]
  - Sensory disturbance [Unknown]
